FAERS Safety Report 15329579 (Version 1)
Quarter: 2018Q3

REPORT INFORMATION
  Report Type: Spontaneous
  Country: US (occurrence: US)
  Receive Date: 20180829
  Receipt Date: 20180829
  Transmission Date: 20181010
  Serious: Yes (Other)
  Sender: FDA-Public Use
  Company Number: US-BAYER-2018-161750

PATIENT
  Age: 62 Year
  Sex: Female

DRUGS (1)
  1. KYLEENA [Suspect]
     Active Substance: LEVONORGESTREL
     Indication: UTERINE HAEMORRHAGE
     Dosage: 17.5 MCG/24HR, CONT
     Route: 015
     Dates: start: 20180524

REACTIONS (5)
  - Off label use of device [None]
  - Contraindicated device used [None]
  - Product use in unapproved indication [None]
  - Medical device monitoring error [None]
  - Genital haemorrhage [None]
